FAERS Safety Report 9782017 (Version 2)
Quarter: 2013Q4

REPORT INFORMATION
  Report Type: Report from Study
  Country: CN (occurrence: CN)
  Receive Date: 20131225
  Receipt Date: 20131225
  Transmission Date: 20140711
  Serious: Yes (Other)
  Sender: FDA-Public Use
  Company Number: CN-ROCHE-1302966

PATIENT
  Sex: 0

DRUGS (16)
  1. BEVACIZUMAB [Suspect]
     Indication: NEOPLASM MALIGNANT
     Dosage: 4-7.5 MGXKG SUPL 1. 100 MG PER VIAL 4 ML
     Route: 042
  2. CAPECITABINE [Concomitant]
     Route: 065
  3. OXALIPLATIN [Concomitant]
  4. FLUOROURACIL [Concomitant]
  5. TEGAFUR [Concomitant]
  6. IRINOTECAN [Concomitant]
  7. PACLITAXEL [Concomitant]
  8. CISPLATIN [Concomitant]
  9. ETOPOSIDE [Concomitant]
  10. GEMCITABINE [Concomitant]
  11. PEMETREXED [Concomitant]
  12. DOCETAXEL [Concomitant]
  13. TEMOZOLOMIDE [Concomitant]
  14. SORAFENIB [Concomitant]
  15. SUNITINIB [Concomitant]
  16. TRASTUZUMAB [Concomitant]
     Route: 065

REACTIONS (16)
  - Hypertension [Unknown]
  - Leukopenia [Unknown]
  - Granulocytopenia [Unknown]
  - Thrombocytopenia [Unknown]
  - Anaemia [Unknown]
  - Peripheral nerve lesion [Unknown]
  - Vomiting [Unknown]
  - Skin disorder [Unknown]
  - Hypersensitivity [Unknown]
  - Haemorrhage [Unknown]
  - Proteinuria [Unknown]
  - Nausea [Unknown]
  - Febrile neutropenia [Unknown]
  - Neutropenia [Unknown]
  - Pyrexia [Unknown]
  - Off label use [Unknown]
